FAERS Safety Report 17489111 (Version 1)
Quarter: 2020Q1

REPORT INFORMATION
  Report Type: Spontaneous
  Country: US (occurrence: US)
  Receive Date: 20200303
  Receipt Date: 20200303
  Transmission Date: 20200409
  Serious: Yes (Death)
  Sender: FDA-Public Use
  Company Number: None

PATIENT
  Age: 66 Year
  Sex: Female
  Weight: 99 kg

DRUGS (11)
  1. PREZCOBIX 800-150 MG-MG TABLET [Concomitant]
  2. OXYCODONE (OXYCONTIN) 10 MG 12 HR ABUSE-DETERRENT TABLET [Concomitant]
  3. APIXABAN [Suspect]
     Active Substance: APIXABAN
     Indication: DEEP VEIN THROMBOSIS
     Route: 048
     Dates: start: 20200220, end: 20200221
  4. OXYCODONE (ROXICODONE) 5 MG IMMEDIATE RELEASE [Concomitant]
  5. ARGATROBAN. [Concomitant]
     Active Substance: ARGATROBAN
  6. MANNITOL 20 % IV 100 G [Concomitant]
  7. DESCOVY 200-25 MG PER TABLET [Concomitant]
  8. RALTEGRAVIR (ISENTRESS) 400 MG TABLET [Concomitant]
  9. TAMSULOSIN 0.4 MG CAPSULE [Concomitant]
     Active Substance: TAMSULOSIN HYDROCHLORIDE
  10. DEXAMETHASONE (DECADRON) 4 MG TABLET [Concomitant]
  11. LEVETIRACETAM (KEPPRA) 500 MG TABLET [Concomitant]

REACTIONS (1)
  - Haemorrhage intracranial [None]

NARRATIVE: CASE EVENT DATE: 20200221
